FAERS Safety Report 15960955 (Version 1)
Quarter: 2019Q1

REPORT INFORMATION
  Report Type: Spontaneous
  Country: US (occurrence: US)
  Receive Date: 20190214
  Receipt Date: 20190214
  Transmission Date: 20190417
  Serious: Yes (Other)
  Sender: FDA-Public Use
  Company Number: US-PFIZER INC-2019057614

PATIENT
  Age: 64 Year
  Sex: Female
  Weight: 68.4 kg

DRUGS (4)
  1. ADVIL [Suspect]
     Active Substance: IBUPROFEN
     Indication: PAIN
     Dosage: 400 MG, 3X/DAY
     Route: 048
  2. ADVIL [Suspect]
     Active Substance: IBUPROFEN
     Indication: INFLAMMATION
  3. VITAMIN D [ERGOCALCIFEROL] [Concomitant]
     Active Substance: ERGOCALCIFEROL
     Dosage: UNK
  4. FISH OIL [Concomitant]
     Active Substance: FISH OIL
     Dosage: UNK

REACTIONS (3)
  - Drug hypersensitivity [Unknown]
  - Rash [Not Recovered/Not Resolved]
  - Seasonal allergy [Unknown]

NARRATIVE: CASE EVENT DATE: 201807
